FAERS Safety Report 9206232 (Version 2)
Quarter: 2013Q2

REPORT INFORMATION
  Report Type: Spontaneous
  Country: US (occurrence: US)
  Receive Date: 20130403
  Receipt Date: 20130610
  Transmission Date: 20140414
  Serious: No
  Sender: FDA-Public Use
  Company Number: US-PFIZER INC-2013105933

PATIENT
  Age: 69 Year
  Sex: Female
  Weight: 56.69 kg

DRUGS (7)
  1. CHANTIX [Suspect]
     Indication: SMOKING CESSATION THERAPY
     Dosage: 0.5 MG DAILY
     Dates: start: 20121123, end: 201211
  2. CHANTIX [Suspect]
     Dosage: STARTING PACK, AS DIRECTED ONCE DAILY
     Dates: start: 201303
  3. EDARBYCLOR [Concomitant]
     Indication: BLOOD PRESSURE ABNORMAL
     Dosage: UNK
  4. KLONOPIN [Concomitant]
     Dosage: UNK
  5. SYNTHROID [Concomitant]
     Dosage: UNK
  6. VOLTAREN [Concomitant]
     Dosage: UNK
  7. PREMARIN [Concomitant]
     Dosage: UNK

REACTIONS (1)
  - Abnormal dreams [Recovering/Resolving]
